FAERS Safety Report 5293609-7 (Version None)
Quarter: 2007Q2

REPORT INFORMATION
  Report Type: 
  Country: None (occurrence: None)
  Receive Date: 20070405
  Receipt Date: 20070327
  Transmission Date: 20071010
  Serious: Yes (Disabling)
  Sender: FDA-Public Use
  Company Number: 2007-156443-NL

PATIENT
  Age: 28 Year
  Sex: Female

DRUGS (1)
  1. ETONOGESTREL [Suspect]
     Dosage: DF
     Route: 058
     Dates: start: 20061201, end: 20070308

REACTIONS (5)
  - MENORRHAGIA [None]
  - PARAESTHESIA [None]
  - SCAR [None]
  - ULNAR NERVE INJURY [None]
  - WEIGHT INCREASED [None]
